FAERS Safety Report 4638560-8 (Version None)
Quarter: 2005Q2

REPORT INFORMATION
  Report Type: 
  Country: None (occurrence: None)
  Receive Date: 20050419
  Receipt Date: 20050407
  Transmission Date: 20051028
  Serious: Yes (Other)
  Sender: FDA-Public Use
  Company Number: BR-JNJFOC-20050402566

PATIENT
  Age: 37 Year
  Sex: Female

DRUGS (4)
  1. INFLIXIMAB [Suspect]
     Indication: RHEUMATOID ARTHRITIS
     Route: 042
  2. PREDNISONE [Concomitant]
  3. PAMIDRONATE DISODIUM [Concomitant]
  4. TENOXICAM [Concomitant]
     Dosage: 5 YEAR HISTORY OF USE

REACTIONS (2)
  - CORNEAL ABSCESS [None]
  - PSORIASIS [None]
